FAERS Safety Report 8216573-7 (Version None)
Quarter: 2012Q1

REPORT INFORMATION
  Report Type: 
  Country: None (occurrence: None)
  Receive Date: 20120316
  Receipt Date: 20120307
  Transmission Date: 20120608
  Serious: Yes (Hospitalization)
  Sender: FDA-Public Use
  Company Number: JP-AMGEN-JPNSP2012009203

PATIENT
  Age: 2 Year
  Sex: Male
  Weight: 8 kg

DRUGS (22)
  1. ALFAROL [Concomitant]
     Dosage: 0.5 MUG, QD
     Route: 048
     Dates: start: 20120204
  2. OXAROL [Concomitant]
     Indication: BLOOD PARATHYROID HORMONE INCREASED
     Dosage: 2.5 MUG, 3 TIMES/WK -15 TIME EXECUTION
     Route: 042
     Dates: start: 20100819, end: 20100922
  3. RENAGEL [Concomitant]
     Dosage: 250 MG, QD
     Route: 048
     Dates: start: 20120112, end: 20120127
  4. RENAGEL [Concomitant]
     Dosage: 250 MG, TID
     Route: 048
     Dates: start: 20120128, end: 20120129
  5. CALCIUM CARBONATE [Concomitant]
     Dosage: 1 G, TID
     Route: 048
     Dates: start: 20120131
  6. CINACALCET HYDROCHLORIDE [Suspect]
     Route: 048
     Dates: start: 20111222, end: 20120124
  7. CINACALCET HYDROCHLORIDE [Suspect]
     Route: 048
     Dates: start: 20120125, end: 20120129
  8. FERROUS CITRATE [Concomitant]
     Indication: IRON DEFICIENCY ANAEMIA
     Route: 048
  9. ALFAROL [Concomitant]
     Indication: HYPERPARATHYROIDISM SECONDARY
     Dosage: 0.25 MUG, QD
     Route: 048
     Dates: start: 20120124, end: 20120203
  10. CALCIUM CARBONATE [Concomitant]
     Indication: HYPOCALCAEMIA
     Dosage: 0.33 G, TID
     Route: 048
     Dates: start: 20120126, end: 20120127
  11. CINACALCET HYDROCHLORIDE [Suspect]
     Indication: HYPERPARATHYROIDISM SECONDARY
     Dosage: UNCERTAINTY
     Route: 048
  12. ROCALTROL [Concomitant]
     Indication: BLOOD PARATHYROID HORMONE INCREASED
     Dosage: 0.1 MUG/KG, 3 TIMES/WK
     Route: 042
     Dates: start: 20100710
  13. CINACALCET HYDROCHLORIDE [Suspect]
     Route: 048
     Dates: start: 20111116, end: 20111119
  14. TENORMIN [Concomitant]
     Indication: HYPERTENSION
     Route: 048
  15. GENOTROPIN [Concomitant]
     Indication: BODY HEIGHT BELOW NORMAL
     Route: 058
  16. ALFAROL [Concomitant]
  17. CINACALCET HYDROCHLORIDE [Suspect]
     Route: 048
     Dates: start: 20111106, end: 20111115
  18. CINACALCET HYDROCHLORIDE [Suspect]
     Route: 048
     Dates: start: 20111120, end: 20111221
  19. EPOGIN S1500,3000 [Concomitant]
     Indication: NEPHROGENIC ANAEMIA
     Dosage: 3000 IU, Q2WK
     Route: 058
  20. CALCIUM CARBONATE [Concomitant]
     Dosage: 0.66 G, TID
     Route: 048
     Dates: start: 20120128, end: 20120130
  21. DIOVAN [Concomitant]
     Indication: HYPERTENSION
     Route: 048
  22. RENAGEL [Concomitant]
     Indication: HYPERPHOSPHATAEMIA
     Dosage: 250 MG, TID
     Route: 048
     Dates: start: 20110908

REACTIONS (3)
  - BLOOD PARATHYROID HORMONE INCREASED [None]
  - HYPOCALCAEMIA [None]
  - HYPERPHOSPHATAEMIA [None]
